FAERS Safety Report 8905681 (Version 1)
Quarter: 2012Q4

REPORT INFORMATION
  Report Type: 
  Country: US (occurrence: US)
  Receive Date: 20121109
  Receipt Date: 20121109
  Transmission Date: 20130627
  Serious: Yes (Hospitalization, Other)
  Sender: FDA-Public Use
  Company Number: US-ARROW-2012-18953

PATIENT
  Age: 83 Year
  Sex: Female
  Weight: 73 kg

DRUGS (4)
  1. LORAZEPAM [Suspect]
     Indication: ANXIETY
     Dosage: 0.5 mg daily prn
     Route: 048
     Dates: end: 20120921
  2. FUROSEMIDE (WATSON LABORATORIES) [Suspect]
     Indication: PRODUCT USED FOR UNKNOWN INDICATION
     Dosage: UNK, unknown
     Route: 048
  3. SIMVASTATIN [Concomitant]
     Indication: BLOOD CHOLESTEROL INCREASED
     Dosage: UNK UNK, unknown
     Route: 048
  4. TIKOSYN [Concomitant]
     Indication: HEART RATE IRREGULAR
     Dosage: 250mcg decreased to 125mcg
     Route: 065

REACTIONS (1)
  - Convulsion [Recovered/Resolved]
